FAERS Safety Report 5179214-1 (Version None)
Quarter: 2006Q4

REPORT INFORMATION
  Report Type: 
  Country: None (occurrence: None)
  Receive Date: 20061219
  Receipt Date: 20061208
  Transmission Date: 20070319
  Serious: Yes (Hospitalization)
  Sender: FDA-Public Use
  Company Number: 2006SE06620

PATIENT
  Age: 74 Year
  Sex: Male

DRUGS (1)
  1. BLOPRESS TABLETS 8 [Suspect]
     Indication: HYPERTENSION
     Route: 048
     Dates: start: 20061004, end: 20061201

REACTIONS (1)
  - CEREBRAL INFARCTION [None]
